FAERS Safety Report 15793524 (Version 1)
Quarter: 2018Q4

REPORT INFORMATION
  Report Type: Spontaneous
  Country: US (occurrence: US)
  Receive Date: 20181213
  Receipt Date: 20181213
  Transmission Date: 20190205
  Serious: No
  Sender: FDA-Public Use
  Company Number: None

PATIENT
  Age: 67 Year
  Sex: Male

DRUGS (2)
  1. TASIGNA [Suspect]
     Active Substance: NILOTINIB
     Indication: PHILADELPHIA CHROMOSOME POSITIVE
     Route: 048
     Dates: start: 201812
  2. TASIGNA [Suspect]
     Active Substance: NILOTINIB
     Indication: CHRONIC MYELOID LEUKAEMIA (IN REMISSION)
     Route: 048
     Dates: start: 201812

REACTIONS (1)
  - Off label use [None]

NARRATIVE: CASE EVENT DATE: 20181211
